FAERS Safety Report 7906263-X (Version None)
Quarter: 2011Q4

REPORT INFORMATION
  Report Type: 
  Country: None (occurrence: None)
  Receive Date: 20111110
  Receipt Date: 20111031
  Transmission Date: 20120403
  Serious: Yes (Hospitalization)
  Sender: FDA-Public Use
  Company Number: US-BAYER-201031224NA

PATIENT
  Age: 27 Year
  Sex: Female
  Weight: 56.689 kg

DRUGS (10)
  1. DROSPIRENONE AND ETHINYL ESTRADIOL [Suspect]
     Dosage: UNK
     Route: 048
     Dates: start: 20061001, end: 20100201
  2. PERCOCET [Concomitant]
  3. ACETAMINOPHEN [Concomitant]
  4. YASMIN [Suspect]
     Dosage: UNK
     Route: 048
     Dates: start: 20061001, end: 20100201
  5. CHLORHEXIDINE GLUCONATE [Concomitant]
     Dosage: UNK
     Dates: start: 20060101, end: 20100101
  6. MAGNESIUM HYDROXIDE TAB [Concomitant]
  7. YAZ [Suspect]
     Route: 048
  8. PEPCID [Concomitant]
  9. ANTIBIOTICS [Concomitant]
  10. ZOFRAN [Concomitant]

REACTIONS (4)
  - PAIN [None]
  - ABDOMINAL PAIN [None]
  - INJURY [None]
  - CHOLECYSTITIS [None]
